FAERS Safety Report 12624495 (Version 1)
Quarter: 2016Q3

REPORT INFORMATION
  Report Type: Spontaneous
  Country: US (occurrence: None)
  Receive Date: 20160804
  Receipt Date: 20160804
  Transmission Date: 20161109
  Serious: Yes (Other)
  Sender: FDA-Public Use
  Company Number: None

PATIENT
  Age: 64 Year
  Sex: Female
  Weight: 94.8 kg

DRUGS (9)
  1. ASPRIN [Concomitant]
     Active Substance: ASPIRIN
  2. FENOFIBRATE. [Suspect]
     Active Substance: FENOFIBRATE
     Indication: PRODUCT USED FOR UNKNOWN INDICATION
  3. FLUOXETINE [Concomitant]
     Active Substance: FLUOXETINE HYDROCHLORIDE
  4. GLIPIZIDE. [Concomitant]
     Active Substance: GLIPIZIDE
  5. TUMS [Concomitant]
     Active Substance: CALCIUM CARBONATE
  6. TRILIPIX [Concomitant]
     Active Substance: FENOFIBRIC ACID
  7. LISINOPRIL. [Concomitant]
     Active Substance: LISINOPRIL
  8. PRILOSEC [Concomitant]
     Active Substance: OMEPRAZOLE MAGNESIUM
  9. VITAMIN D [Concomitant]
     Active Substance: CHOLECALCIFEROL

REACTIONS (8)
  - Flatulence [None]
  - Confusional state [None]
  - Abdominal discomfort [None]
  - Abdominal pain upper [None]
  - Abdominal distension [None]
  - Nausea [None]
  - Gastric haemorrhage [None]
  - Dizziness [None]

NARRATIVE: CASE EVENT DATE: 20151205
